FAERS Safety Report 23124589 (Version 1)
Quarter: 2023Q4

REPORT INFORMATION
  Report Type: Spontaneous
  Country: US (occurrence: US)
  Receive Date: 20231030
  Receipt Date: 20231030
  Transmission Date: 20240110
  Serious: No
  Sender: FDA-Public Use
  Company Number: US-OPELLA-2023OHG009804

PATIENT

DRUGS (1)
  1. ICY HOT PRO DRY [Suspect]
     Active Substance: CAMPHOR (SYNTHETIC)\MENTHOL
     Route: 065

REACTIONS (3)
  - Administration site rash [Recovered/Resolved]
  - Administration site pain [Recovered/Resolved]
  - Hypersensitivity [Recovered/Resolved]
